FAERS Safety Report 21824033 (Version 2)
Quarter: 2023Q1

REPORT INFORMATION
  Report Type: Spontaneous
  Country: US (occurrence: US)
  Receive Date: 20230105
  Receipt Date: 20230201
  Transmission Date: 20230418
  Serious: No
  Sender: FDA-Public Use
  Company Number: US-IDORSIA-002817-2022-US

PATIENT
  Age: 57 Year
  Sex: Female

DRUGS (2)
  1. QUVIVIQ [Suspect]
     Active Substance: DARIDOREXANT
     Indication: Insomnia
     Dosage: 50 MG, QD
     Route: 048
     Dates: start: 202211, end: 202211
  2. VITAMINS [Concomitant]
     Active Substance: VITAMINS

REACTIONS (5)
  - Somnambulism [Recovered/Resolved]
  - Sleep talking [Recovered/Resolved]
  - Nightmare [Recovered/Resolved]
  - Feeling abnormal [Recovered/Resolved]
  - Headache [Recovered/Resolved]

NARRATIVE: CASE EVENT DATE: 20221101
